FAERS Safety Report 5179512-1 (Version None)
Quarter: 2006Q4

REPORT INFORMATION
  Report Type: 
  Country: None (occurrence: None)
  Receive Date: 20061211
  Receipt Date: 20061123
  Transmission Date: 20070319
  Serious: Yes (Hospitalization)
  Sender: FDA-Public Use
  Company Number: 2006SP000092

PATIENT
  Age: 50 Year
  Sex: Female

DRUGS (2)
  1. POSACONAZOLE [Suspect]
     Indication: NEUTROPENIA
     Dosage: SEE IMAGE
     Route: 042
     Dates: start: 20060623, end: 20060706
  2. POSACONAZOLE [Suspect]
     Indication: NEUTROPENIA
     Dosage: SEE IMAGE
     Route: 042
     Dates: start: 20060707, end: 20060720

REACTIONS (11)
  - ACUTE GRAFT VERSUS HOST DISEASE IN LIVER [None]
  - ACUTE GRAFT VERSUS HOST DISEASE IN SKIN [None]
  - CATHETER RELATED INFECTION [None]
  - DRUG TOXICITY [None]
  - HAEMOLYTIC ANAEMIA [None]
  - PNEUMONIA [None]
  - POLYNEUROPATHY [None]
  - RENAL FAILURE ACUTE [None]
  - RESPIRATORY FAILURE [None]
  - SEPSIS [None]
  - STEM CELL TRANSPLANT [None]
